FAERS Safety Report 5982209-9 (Version None)
Quarter: 2008Q4

REPORT INFORMATION
  Report Type: 
  Country: None (occurrence: None)
  Receive Date: 20081208
  Receipt Date: 20081201
  Transmission Date: 20090506
  Serious: Yes (Other)
  Sender: FDA-Public Use
  Company Number: US-JNJFOC-20050402780

PATIENT
  Sex: Male
  Weight: 95.26 kg

DRUGS (2)
  1. RISPERDAL [Suspect]
     Indication: ASPERGER'S DISORDER
     Route: 048
  2. GEODON [Concomitant]
     Route: 048

REACTIONS (10)
  - AKATHISIA [None]
  - ANXIETY [None]
  - BLOOD PROLACTIN INCREASED [None]
  - DELUSION [None]
  - FEAR [None]
  - PRURITUS GENITAL [None]
  - SALIVARY DUCT OBSTRUCTION [None]
  - SUICIDAL IDEATION [None]
  - WEIGHT DECREASED [None]
  - WEIGHT INCREASED [None]
